FAERS Safety Report 9548197 (Version 1)
Quarter: 2013Q3

REPORT INFORMATION
  Report Type: Spontaneous
  Country: US (occurrence: None)
  Receive Date: 20130923
  Receipt Date: 20130923
  Transmission Date: 20140515
  Serious: Yes (Other)
  Sender: FDA-Public Use
  Company Number: None

PATIENT
  Age: 76 Year
  Sex: Female
  Weight: 56.25 kg

DRUGS (11)
  1. PANTOPRAZOLE [Suspect]
     Indication: FOOD POISONING
     Dosage: 30 TABLETS
     Route: 048
     Dates: start: 20130827, end: 20130904
  2. BYSTOLIC [Suspect]
  3. VIT C (CHEWABLE) [Concomitant]
  4. ADVIL GELS [Concomitant]
  5. MELATONIN [Concomitant]
  6. RICOLA NATURAL COUGH DROPS [Concomitant]
  7. MYLANTA GAS + LIQUID [Concomitant]
  8. METAMUCIL [Concomitant]
  9. DUCOLAX TABS [Concomitant]
  10. MILK OF MAGNESIA [Concomitant]
  11. TUMS (CHEWABLES) [Concomitant]

REACTIONS (3)
  - Diarrhoea [None]
  - Heart rate irregular [None]
  - Cough [None]
